FAERS Safety Report 5451074-0 (Version None)
Quarter: 2007Q3

REPORT INFORMATION
  Report Type: 
  Country: None (occurrence: None)
  Receive Date: 20070911
  Receipt Date: 20070827
  Transmission Date: 20080115
  Serious: Yes (Other)
  Sender: FDA-Public Use
  Company Number: 2007-02918

PATIENT
  Age: 69 Year
  Sex: Female
  Weight: 68 kg

DRUGS (19)
  1. VELCADE [Suspect]
     Indication: MULTIPLE MYELOMA
     Dosage: 2.30 MG, INTRAVENOUS
     Route: 042
     Dates: start: 20070525, end: 20070604
  2. CARVEDILOL [Suspect]
     Indication: ANGINA PECTORIS
     Dosage: 2.50 MG, ORAL
     Route: 048
  3. VERAPAMIL HYDROCHLORIDE [Suspect]
     Indication: ANGINA PECTORIS
     Dosage: 40.00 MG, ORAL
     Route: 048
  4. DEXAMETHASONE 0.5MG TAB [Concomitant]
  5. OXYCONTIN [Concomitant]
  6. MORPHINE [Concomitant]
  7. FENTANYL [Concomitant]
  8. URSO 250 [Concomitant]
  9. MAGNESIUM OXIDE (MAGNESIUM OXIDE) [Concomitant]
  10. PANTOSIN (PANTETHINE) [Concomitant]
  11. LASIX [Concomitant]
  12. ASPIRIN [Concomitant]
  13. RABEPRAZOLE SODIUM [Concomitant]
  14. ALOSENN (TARAXACUM OFFICINALE, ACHILLEA, SENNA LEAF, RUBIA ROOT TINCTU [Concomitant]
  15. BAKTAR (SULFAMETHOXAZOLE TRIMETHOPRIM) [Concomitant]
  16. NAUZELIN (DOMPERIDONE) [Concomitant]
  17. ZYPREXA [Concomitant]
  18. ALDACTONE [Concomitant]
  19. RED BLOOD CELLS [Concomitant]

REACTIONS (6)
  - ANXIETY [None]
  - BUNDLE BRANCH BLOCK [None]
  - HYPOAESTHESIA [None]
  - HYPOTENSION [None]
  - IRRITABILITY [None]
  - PLATELET COUNT DECREASED [None]
